FAERS Safety Report 16267332 (Version 1)
Quarter: 2019Q2

REPORT INFORMATION
  Report Type: Spontaneous
  Country: CN (occurrence: CN)
  Receive Date: 20190502
  Receipt Date: 20190502
  Transmission Date: 20190711
  Serious: Yes (Disabling)
  Sender: FDA-Public Use
  Company Number: CN-BAXTER-2019BAX008617

PATIENT
  Age: 6 Year
  Sex: Female
  Weight: 23.3 kg

DRUGS (8)
  1. 5% GLUCOSE AND 0.9% SODIUM CHLORIDE INJECTION [Suspect]
     Active Substance: DEXTROSE\SODIUM CHLORIDE
     Indication: MEDICATION DILUTION
     Dosage: WITH CYCLOPHOSPHAMIDE 0.85 G IN CAT REGIMEN CHEMOTHERAPY
     Route: 041
     Dates: start: 20190329, end: 20190329
  2. OUBEI [Suspect]
     Active Substance: ONDANSETRON HYDROCHLORIDE
     Indication: ACUTE LYMPHOCYTIC LEUKAEMIA
     Route: 042
     Dates: start: 20190329, end: 20190401
  3. MERCAPTOPURINE. [Suspect]
     Active Substance: MERCAPTOPURINE
     Indication: ACUTE LYMPHOCYTIC LEUKAEMIA
     Dosage: DOSAGE FORM: TABLET
     Route: 048
     Dates: start: 20190329, end: 20190404
  4. CYTARABINE. [Suspect]
     Active Substance: CYTARABINE
     Indication: ACUTE LYMPHOCYTIC LEUKAEMIA
     Dosage: WITH (4:1) GLUCOSE AND SODIUM CHLORIDE INJECTION 250 ML, ONCE ON DAY 1, CAT REGIMEN CHEMOTHERAPY
     Route: 041
     Dates: start: 20190329, end: 20190329
  5. 5% GLUCOSE AND 0.9% SODIUM CHLORIDE INJECTION [Suspect]
     Active Substance: DEXTROSE\SODIUM CHLORIDE
     Dosage: CYTARABINE FOR INJECTION 0.85 G IN CAT REGIMEN CHEMOTHERAPY, 6 TIMES IN TOTAL
     Route: 041
     Dates: start: 20190330, end: 20190401
  6. ENDOXAN [Suspect]
     Active Substance: CYCLOPHOSPHAMIDE
     Indication: ACUTE LYMPHOCYTIC LEUKAEMIA
     Dosage: WITH (4:1) GLUCOSE AND SODIUM CHLORIDE INJECTION 250 ML, CAT REGIMEN CHEMOTHERAPY
     Route: 041
     Dates: start: 20190329, end: 20190329
  7. 5% GLUCOSE AND 0.9% SODIUM CHLORIDE INJECTION [Suspect]
     Active Substance: DEXTROSE\SODIUM CHLORIDE
     Dosage: WITH CYTARABINE FOR INJECTION 0.85G IN CAT REGIMEN CHEMOTHERAPY, ONCE ON DAY 1
     Route: 041
     Dates: start: 20190329, end: 20190329
  8. CYTARABINE. [Suspect]
     Active Substance: CYTARABINE
     Dosage: WITH (4:1) GLUCOSE AND SODIUM CHLORIDE INJECTION 250 ML, 6 TIMES IN TOTAL, CAT REGIMEN CHEMOTHERAPY
     Route: 041
     Dates: start: 20190330, end: 20190401

REACTIONS (1)
  - Bone marrow failure [Recovering/Resolving]

NARRATIVE: CASE EVENT DATE: 20190409
